FAERS Safety Report 8457780-8 (Version None)
Quarter: 2012Q2

REPORT INFORMATION
  Report Type: 
  Country: None (occurrence: None)
  Receive Date: 20120323
  Receipt Date: 20110809
  Transmission Date: 20120825
  Serious: Yes (Life-Threatening, Hospitalization, Disabling)
  Sender: FDA-Public Use
  Company Number: 163-21880-11081391

PATIENT
  Age: 67 Year
  Sex: Female

DRUGS (3)
  1. REVLIMID [Suspect]
     Indication: MULTIPLE MYELOMA
     Dosage: 10 MG, X 14 DAYS/OFF 14 DAYS, PO
     Route: 048
     Dates: start: 20110302
  2. DEXAMETHASONE [Concomitant]
  3. VITAMIN D [Concomitant]

REACTIONS (1)
  - CEREBROVASCULAR ACCIDENT [None]
